FAERS Safety Report 17520597 (Version 1)
Quarter: 2020Q1

REPORT INFORMATION
  Report Type: Spontaneous
  Country: US (occurrence: US)
  Receive Date: 20200310
  Receipt Date: 20200310
  Transmission Date: 20200409
  Serious: No
  Sender: FDA-Public Use
  Company Number: US-BAYER-2020-040246

PATIENT
  Age: 58 Year
  Sex: Male

DRUGS (3)
  1. MIRALAX [Suspect]
     Active Substance: POLYETHYLENE GLYCOL 3350
     Indication: INTESTINAL OBSTRUCTION
     Route: 048
  2. METHANOL [Suspect]
     Active Substance: METHYL ALCOHOL
     Dosage: 24 DF, QD
  3. PERCOCET [Concomitant]
     Active Substance: ACETAMINOPHEN\OXYCODONE HYDROCHLORIDE
     Dosage: 72 DF, QD

REACTIONS (2)
  - Product use in unapproved indication [Unknown]
  - Asthenia [Unknown]
